FAERS Safety Report 18229839 (Version 3)
Quarter: 2020Q3

REPORT INFORMATION
  Report Type: Report from Study
  Country: US (occurrence: US)
  Receive Date: 20200903
  Receipt Date: 20200923
  Transmission Date: 20201103
  Serious: Yes (Death, Other)
  Sender: FDA-Public Use
  Company Number: US-GILEAD-2020-0493351

PATIENT
  Age: 57 Year
  Sex: Female

DRUGS (9)
  1. CYANOCOBALAMIN. [Concomitant]
     Active Substance: CYANOCOBALAMIN
  2. SILDENAFIL. [Concomitant]
     Active Substance: SILDENAFIL
  3. TRAMADOL. [Concomitant]
     Active Substance: TRAMADOL
  4. DIGOXIN. [Concomitant]
     Active Substance: DIGOXIN
  5. MAG OXIDE [Concomitant]
     Active Substance: MAGNESIUM OXIDE
  6. PERCOCET [OXYCODONE HYDROCHLORIDE;OXYCODONE TEREPHTHALATE;PARACETAMOL] [Concomitant]
     Active Substance: ACETAMINOPHEN\OXYCODONE HYDROCHLORIDE\OXYCODONE TEREPHTHALATE
  7. AMBRISENTAN [Suspect]
     Active Substance: AMBRISENTAN
     Indication: PULMONARY ARTERIAL HYPERTENSION
     Dosage: 10 MG, QD
     Route: 065
     Dates: start: 20160311
  8. PREDNISONE. [Concomitant]
     Active Substance: PREDNISONE
  9. TRUEPLUS GLUCOSE [Concomitant]

REACTIONS (1)
  - Pulmonary arterial hypertension [Fatal]

NARRATIVE: CASE EVENT DATE: 20200824
